FAERS Safety Report 12282959 (Version 3)
Quarter: 2016Q3

REPORT INFORMATION
  Report Type: Spontaneous
  Country: NL (occurrence: NL)
  Receive Date: 20160419
  Receipt Date: 20160808
  Transmission Date: 20161109
  Serious: Yes (Hospitalization, Other)
  Sender: FDA-Public Use
  Company Number: NL-PFIZER INC-2016212707

PATIENT
  Age: 57 Year
  Sex: Male

DRUGS (1)
  1. SOMAVERT [Suspect]
     Active Substance: PEGVISOMANT
     Indication: ACROMEGALY
     Dosage: 40 MG, 3X/WEEK
     Route: 058
     Dates: start: 20140210

REACTIONS (4)
  - Arrhythmia [Recovered/Resolved with Sequelae]
  - Cardiac failure [Recovered/Resolved with Sequelae]
  - Lung disorder [Recovered/Resolved with Sequelae]
  - Product use issue [Unknown]

NARRATIVE: CASE EVENT DATE: 2016
